FAERS Safety Report 17007389 (Version 1)
Quarter: 2019Q4

REPORT INFORMATION
  Report Type: Other
  Country: GB (occurrence: GB)
  Receive Date: 20191108
  Receipt Date: 20191108
  Transmission Date: 20200122
  Serious: No
  Sender: FDA-Public Use
  Company Number: GB-LUPIN PHARMACEUTICALS INC.-2019-06054

PATIENT
  Age: 74 Year
  Sex: Female
  Weight: 61 kg

DRUGS (15)
  1. DICLOFENAC DIETHYLAMINE [Concomitant]
     Active Substance: DICLOFENAC DIETHYLAMINE
     Indication: ILL-DEFINED DISORDER
     Dosage: UNK, TID, APPLY 3 TIMES/DAY
     Route: 065
     Dates: start: 20190304
  2. LANSOPRAZOLE. [Suspect]
     Active Substance: LANSOPRAZOLE
     Indication: ILL-DEFINED DISORDER
     Dosage: UNK
     Route: 065
     Dates: start: 20190703
  3. EZETIMIBE. [Concomitant]
     Active Substance: EZETIMIBE
     Indication: ILL-DEFINED DISORDER
     Dosage: 1 DOSAGE FORM, QD (TAKE ONE DAILY)
     Route: 065
     Dates: start: 20190613
  4. CYCLIZINE [Concomitant]
     Active Substance: CYCLIZINE
     Indication: ILL-DEFINED DISORDER
     Dosage: 50 MILLIGRAM, TID
     Route: 065
     Dates: start: 20190304, end: 20190705
  5. SIMVASTATIN. [Concomitant]
     Active Substance: SIMVASTATIN
     Indication: ILL-DEFINED DISORDER
     Dosage: 1 DOSAGE FORM, QD (TAKE ONE IN NIGHT)
     Route: 065
     Dates: start: 20190304, end: 20190705
  6. ALENDRONIC ACID [Concomitant]
     Active Substance: ALENDRONIC ACID
     Indication: ILL-DEFINED DISORDER
     Dosage: UNK, 1 WEEKLY
     Route: 065
     Dates: start: 20190304
  7. HYPROMELLOSE [Concomitant]
     Active Substance: HYPROMELLOSES
     Indication: ILL-DEFINED DISORDER
     Dosage: UNK, 1-2 DROPS 3-4 TIMES A DAY
     Route: 065
     Dates: start: 20190304, end: 20190705
  8. BECONASE AQ [Concomitant]
     Active Substance: BECLOMETHASONE DIPROPIONATE MONOHYDRATE
     Indication: ILL-DEFINED DISORDER
     Dosage: UNK, 2 PUFFS TWICE A DAY EACH NOSTRIL
     Route: 065
     Dates: start: 20190304
  9. GABAPENTIN. [Concomitant]
     Active Substance: GABAPENTIN
     Indication: ILL-DEFINED DISORDER
     Dosage: UNK, 2 TDS
     Route: 065
     Dates: start: 20190304
  10. CLARITHROMYCIN. [Suspect]
     Active Substance: CLARITHROMYCIN
     Indication: ILL-DEFINED DISORDER
     Dosage: UNK
     Route: 065
     Dates: start: 20190703
  11. COCODAMOL [Concomitant]
     Active Substance: ACETAMINOPHEN\CODEINE PHOSPHATE
     Indication: ILL-DEFINED DISORDER
     Dosage: UNK, 1-2QDS WHEN REQUIRED
     Route: 065
     Dates: start: 20190304
  12. HYDROCORTISONE. [Concomitant]
     Active Substance: HYDROCORTISONE
     Indication: ILL-DEFINED DISORDER
     Dosage: UNK UNK, BID (TWICE A DAY)
     Route: 065
     Dates: start: 20190304, end: 20190705
  13. AMOXICILLIN. [Suspect]
     Active Substance: AMOXICILLIN
     Indication: ILL-DEFINED DISORDER
     Dosage: UNK
     Route: 065
     Dates: start: 20190703
  14. ADCAL [CALCIUM CARBONATE] [Concomitant]
     Indication: ILL-DEFINED DISORDER
     Dosage: 2 DOSAGE FORM, BID (TAKE TWO TWICE DAILY)
     Route: 065
     Dates: start: 20190304
  15. QUININE [Concomitant]
     Active Substance: QUININE
     Indication: ILL-DEFINED DISORDER
     Dosage: 1 DOSAGE FORM, QD (ONE AT NIGHT)
     Route: 065
     Dates: start: 20190304

REACTIONS (1)
  - Hypersensitivity [Unknown]

NARRATIVE: CASE EVENT DATE: 20190724
